FAERS Safety Report 5201138-1 (Version None)
Quarter: 2007Q1

REPORT INFORMATION
  Report Type: 
  Country: None (occurrence: None)
  Receive Date: 20070103
  Receipt Date: 20061218
  Transmission Date: 20070707
  Serious: Yes (Death, Hospitalization)
  Sender: FDA-Public Use
  Company Number: 2006JP003612

PATIENT
  Age: 29 Year
  Sex: Male
  Weight: 63.8 kg

DRUGS (37)
  1. TACROLIMUS (TACROLIMUS)CAPSULE [Suspect]
     Indication: STEM CELL TRANSPLANT
     Dosage: ORAL
     Route: 048
     Dates: start: 20050728, end: 20051001
  2. TACROLIMUS (TACROLIMUS) INJECTION [Suspect]
     Indication: STEM CELL TRANSPLANT
     Dosage: IV NOS
     Route: 042
     Dates: start: 20050608, end: 20050727
  3. GASTER D ORODISPERSABLE CR TABLET [Concomitant]
  4. ZOVIRAX [Concomitant]
  5. MEDICON (DEXTROMETHORPHAN HYDROBROMIDE) TABLET [Concomitant]
  6. URSO (URSODEOXYCHOLIC ACID) TABLET [Concomitant]
  7. BIOFERMIN R (STREPTOCOCCUS FAECALIS) TABLET [Concomitant]
  8. BACTAR (SULFAMETHOXAZOLE, TRIMETHOPRIM) TABLET [Concomitant]
  9. ULCERLMIN (SUCRALFATE) FINE GRANULE [Concomitant]
  10. HIRNAMIN (LEVOMEPROMAZINE) TABLET [Concomitant]
  11. PREDNISOLONE [Concomitant]
  12. VFEND (VORICONAZOLE) TABLET [Concomitant]
  13. ALOSITOL TABLET [Concomitant]
  14. SLOW-K [Concomitant]
  15. IMURAN [Concomitant]
  16. TOLEDOMIN (MILNACIPRAN HYDROCHLORIDE) TABLET [Concomitant]
  17. FIRSTCIN (CEFOZOPRAN HYDROCHLORIDE) INJECTION [Concomitant]
  18. TIENAM (IMIPENEM, CILASTATIN SODIUM) INJECTION [Concomitant]
  19. TARGOCID [Concomitant]
  20. CIPROXAN-I.V. (CIPROFLOXACIN) INJECTION [Concomitant]
  21. MEROPENEM (MEROPENEM) INJECTION [Concomitant]
  22. OMEGACIN (BIAPENEM) INJECTION [Concomitant]
  23. FUNGIZONE INJECTION [Concomitant]
  24. PRODIF INJECTION [Concomitant]
  25. VFEND (VORICONAZOLE) INJECTION [Concomitant]
  26. NEUPOGEN [Concomitant]
  27. FOY (GABEXATE MESILATE) INJECTION [Concomitant]
  28. FUTHAN (NAFAMOSTAT MESILATE) INJECTION [Concomitant]
  29. KAYTWO N (MENATETRENONE) INJECTION [Concomitant]
  30. FRAGMIN (DALTEPARIN SODIUM) INJECTION [Concomitant]
  31. GLYCEOL (FRUCTOSE, GLYCEROL) INJECTION [Concomitant]
  32. PENTAGIN (PENTAZOCINE) INJECTION [Concomitant]
  33. MORPHINE (MORPHINE) INJECTION [Concomitant]
  34. OMEPRAL INJECTION [Concomitant]
  35. PREDONINE (PREDNISOLONE SODIUM SUCCINATE) INJECTION [Concomitant]
  36. ROHYPNOL (FLUNITRAZEPAM) INJECTION [Concomitant]
  37. METHOTREXATE [Concomitant]

REACTIONS (24)
  - ABDOMINAL PAIN UPPER [None]
  - ALANINE AMINOTRANSFERASE INCREASED [None]
  - ASPARTATE AMINOTRANSFERASE INCREASED [None]
  - BK VIRUS INFECTION [None]
  - BRONCHOPULMONARY ASPERGILLOSIS [None]
  - CEREBRAL ASPERGILLOSIS [None]
  - CHRONIC GRAFT VERSUS HOST DISEASE [None]
  - CONVULSION [None]
  - CYTOMEGALOVIRUS ANTIGEN POSITIVE [None]
  - ECCHYMOSIS [None]
  - FULL BLOOD COUNT DECREASED [None]
  - GASTROINTESTINAL DISORDER [None]
  - HAEMORRHAGIC DISORDER [None]
  - HERPES ZOSTER DISSEMINATED [None]
  - INFECTION IN AN IMMUNOCOMPROMISED HOST [None]
  - LIVER DISORDER [None]
  - LUNG DISORDER [None]
  - PANCREATIC DISORDER [None]
  - PLEURAL EFFUSION [None]
  - RENAL DISORDER [None]
  - THROMBOTIC MICROANGIOPATHY [None]
  - URINARY RETENTION [None]
  - VIRAL HAEMORRHAGIC CYSTITIS [None]
  - VOMITING [None]
